FAERS Safety Report 18609949 (Version 1)
Quarter: 2020Q4

REPORT INFORMATION
  Report Type: Spontaneous
  Country: US (occurrence: US)
  Receive Date: 20201214
  Receipt Date: 20201214
  Transmission Date: 20210114
  Serious: Yes (Other)
  Sender: FDA-Public Use
  Company Number: US-009507513-2012USA004639

PATIENT
  Age: 75 Year
  Sex: Male

DRUGS (1)
  1. KEYTRUDA [Suspect]
     Active Substance: PEMBROLIZUMAB
     Indication: MALIGNANT MELANOMA OF EYELID
     Dosage: 200 MILLIGRAM, EVERY 3 WEEKS
     Route: 042

REACTIONS (7)
  - Dry mouth [Unknown]
  - Immune-mediated pneumonitis [Unknown]
  - Conjunctivitis [Unknown]
  - Dry eye [Unknown]
  - Fatigue [Unknown]
  - Oedema [Unknown]
  - Radiation skin injury [Unknown]
